FAERS Safety Report 12184660 (Version 1)
Quarter: 2016Q1

REPORT INFORMATION
  Report Type: Spontaneous
  Country: US (occurrence: US)
  Receive Date: 20160316
  Receipt Date: 20160316
  Transmission Date: 20160526
  Serious: No
  Sender: FDA-Public Use
  Company Number: US-WARNER CHILCOTT, LLC-1049184

PATIENT
  Age: 73 Year
  Sex: Female
  Weight: 66.14 kg

DRUGS (7)
  1. ESTRACE [Suspect]
     Active Substance: ESTRADIOL
     Route: 061
     Dates: start: 2015, end: 20150409
  2. ESTRACE [Suspect]
     Active Substance: ESTRADIOL
     Indication: VULVOVAGINAL DRYNESS
     Route: 061
     Dates: start: 2015, end: 2015
  3. METFORMIN [Concomitant]
     Active Substance: METFORMIN HYDROCHLORIDE
  4. LEVOTHYROXINE. [Concomitant]
     Active Substance: LEVOTHYROXINE
  5. VALSARTAN AND HYDROCHLOROTHIAZIDE [Concomitant]
     Active Substance: HYDROCHLOROTHIAZIDE\VALSARTAN
  6. AMLODIPINE [Concomitant]
     Active Substance: AMLODIPINE BESYLATE
  7. SIMVASTATIN. [Concomitant]
     Active Substance: SIMVASTATIN

REACTIONS (8)
  - Pruritus [Recovered/Resolved]
  - Psychomotor hyperactivity [Recovering/Resolving]
  - Oropharyngeal pain [Recovering/Resolving]
  - Hyperhidrosis [Not Recovered/Not Resolved]
  - Throat tightness [Recovered/Resolved]
  - Stress urinary incontinence [Not Recovered/Not Resolved]
  - Abdominal pain lower [Recovering/Resolving]
  - Throat irritation [Not Recovered/Not Resolved]

NARRATIVE: CASE EVENT DATE: 20150224
